FAERS Safety Report 8948260 (Version 1)
Quarter: 2012Q4

REPORT INFORMATION
  Report Type: Report from Study
  Country: CA (occurrence: CA)
  Receive Date: 20121121
  Receipt Date: 20121121
  Transmission Date: 20130627
  Serious: Yes (Hospitalization)
  Sender: FDA-Public Use
  Company Number: CA-ASTELLAS-1097234

PATIENT
  Age: 55 Year
  Sex: Male
  Weight: 100 kg

DRUGS (5)
  1. ROACTEMRA [Suspect]
     Indication: RHEUMATOID ARTHRITIS
     Route: 042
     Dates: start: 20120426, end: 20120627
  2. ROACTEMRA [Suspect]
     Route: 065
     Dates: start: 20120515
  3. PREDNISONE [Concomitant]
  4. OMEPRAZOLE [Concomitant]
  5. ACTONEL [Concomitant]

REACTIONS (12)
  - Pallor [Unknown]
  - Hyperhidrosis [Unknown]
  - Respiratory arrest [Recovered/Resolved]
  - Blood pressure decreased [Recovered/Resolved]
  - Pulse absent [Recovered/Resolved]
  - Foaming at mouth [Recovered/Resolved]
  - Eye movement disorder [Recovered/Resolved]
  - Diarrhoea haemorrhagic [Unknown]
  - Diarrhoea [Unknown]
  - Colitis [Unknown]
  - Pain in extremity [Unknown]
  - Dehydration [Unknown]
